FAERS Safety Report 9242108 (Version 1)
Quarter: 2013Q2

REPORT INFORMATION
  Report Type: Report from Study
  Country: DE (occurrence: DE)
  Receive Date: 20130419
  Receipt Date: 20130419
  Transmission Date: 20140414
  Serious: Yes (Hospitalization)
  Sender: FDA-Public Use
  Company Number: DE-ABBOTT-13P-062-1076850-00

PATIENT
  Age: 45 Year
  Sex: Female
  Weight: 62 kg

DRUGS (4)
  1. HUMIRA [Suspect]
     Indication: CROHN^S DISEASE
     Route: 058
     Dates: start: 20121210
  2. PREDNISOLONE [Suspect]
     Indication: CROHN^S DISEASE
     Route: 048
     Dates: start: 20121016
  3. SANDIMMUN [Suspect]
     Indication: PSORIASIS
     Route: 048
     Dates: start: 20111130
  4. COTRIM FORTE [Concomitant]
     Indication: CROHN^S DISEASE
     Dates: start: 20121210

REACTIONS (3)
  - Chills [Recovered/Resolved]
  - Device related infection [Recovered/Resolved]
  - Escherichia infection [Recovered/Resolved]
